FAERS Safety Report 4757682-4 (Version None)
Quarter: 2005Q3

REPORT INFORMATION
  Report Type: 
  Country: None (occurrence: None)
  Receive Date: 20050831
  Receipt Date: 20050822
  Transmission Date: 20060218
  Serious: Yes (Other)
  Sender: FDA-Public Use
  Company Number: BE-GLAXOSMITHKLINE-B0391735A

PATIENT
  Sex: Female

DRUGS (2)
  1. IMITREX [Suspect]
     Indication: MIGRAINE
  2. IMITREX [Suspect]
     Route: 058

REACTIONS (3)
  - DEPRESSION [None]
  - DRUG ABUSER [None]
  - FATIGUE [None]
